FAERS Safety Report 6317694-6 (Version None)
Quarter: 2009Q3

REPORT INFORMATION
  Report Type: 
  Country: None (occurrence: None)
  Receive Date: 20090821
  Receipt Date: 20090812
  Transmission Date: 20100115
  Serious: Yes (Other)
  Sender: FDA-Public Use
  Company Number: PHHY2009BR34138

PATIENT
  Age: 30 Year
  Sex: Female
  Weight: 75 kg

DRUGS (1)
  1. RITALIN [Suspect]
     Dosage: 10 MG, QD
     Route: 048
     Dates: start: 20070601

REACTIONS (1)
  - DEPRESSION [None]
